FAERS Safety Report 8328695-0 (Version None)
Quarter: 2012Q2

REPORT INFORMATION
  Report Type: 
  Country: None (occurrence: None)
  Receive Date: 20120430
  Receipt Date: 20120430
  Transmission Date: 20120825
  Serious: Yes (Hospitalization, Other)
  Sender: FDA-Public Use
  Company Number: AUR-APL-2012-01072

PATIENT
  Age: 9 Month
  Sex: Male
  Weight: 8.6 kg

DRUGS (2)
  1. VENLAFAXINE [Suspect]
     Indication: PRODUCT USED FOR UNKNOWN INDICATION
     Dosage: 150 MG, ORAL
     Route: 048
  2. FLUORIDE (SODIUM FLUORIDE) [Concomitant]

REACTIONS (24)
  - MYDRIASIS [None]
  - DRUG SCREEN POSITIVE [None]
  - EYE MOVEMENT DISORDER [None]
  - RED BLOOD CELLS URINE POSITIVE [None]
  - PRURITUS GENERALISED [None]
  - TREMOR [None]
  - DEPRESSION [None]
  - FLUSHING [None]
  - RASH MACULAR [None]
  - TOXICITY TO VARIOUS AGENTS [None]
  - URINE ANALYSIS ABNORMAL [None]
  - ACCIDENTAL DRUG INTAKE BY CHILD [None]
  - SEDATION [None]
  - IRRITABILITY [None]
  - URINE KETONE BODY PRESENT [None]
  - PROTEIN URINE PRESENT [None]
  - ACCIDENTAL OVERDOSE [None]
  - DIET REFUSAL [None]
  - PARKINSONIAN REST TREMOR [None]
  - ABNORMAL BEHAVIOUR [None]
  - AGITATION [None]
  - BODY TEMPERATURE INCREASED [None]
  - FALSE POSITIVE INVESTIGATION RESULT [None]
  - LABORATORY TEST INTERFERENCE [None]
